FAERS Safety Report 4910705-1 (Version None)
Quarter: 2006Q1

REPORT INFORMATION
  Report Type: 
  Country: None (occurrence: None)
  Receive Date: 20060214
  Receipt Date: 20060206
  Transmission Date: 20060701
  Serious: Yes (Hospitalization)
  Sender: FDA-Public Use
  Company Number: US-BRISTOL-MYERS SQUIBB COMPANY-13273891

PATIENT
  Age: 77 Year
  Sex: Female
  Weight: 55 kg

DRUGS (13)
  1. CETUXIMAB [Suspect]
     Indication: NON-SMALL CELL LUNG CANCER
     Route: 042
     Dates: start: 20050901
  2. CARBOPLATIN [Suspect]
     Indication: NON-SMALL CELL LUNG CANCER
  3. TAXOL [Suspect]
     Indication: NON-SMALL CELL LUNG CANCER
  4. ALBUTEROL [Concomitant]
  5. CALCIUM GLUCONATE [Concomitant]
  6. CEPHALEXIN [Concomitant]
     Dates: start: 20060120
  7. DILTIAZEM HCL [Concomitant]
  8. ELAVIL [Concomitant]
  9. ESTRATEST [Concomitant]
  10. MINOCYCLINE HCL [Concomitant]
  11. MULTI-VITAMIN [Concomitant]
  12. SPIRIVA [Concomitant]
     Route: 055
  13. ZOLOFT [Concomitant]

REACTIONS (1)
  - DEHYDRATION [None]
